FAERS Safety Report 10991616 (Version 1)
Quarter: 2015Q2

REPORT INFORMATION
  Report Type: Spontaneous
  Country: DE (occurrence: DE)
  Receive Date: 20150406
  Receipt Date: 20150406
  Transmission Date: 20150821
  Serious: Yes (Other)
  Sender: FDA-Public Use
  Company Number: DE-PFIZER INC-2015115034

PATIENT
  Age: 50 Year
  Sex: Male

DRUGS (1)
  1. CLINDAMYCIN HCL [Suspect]
     Active Substance: CLINDAMYCIN HYDROCHLORIDE
     Indication: PERIODONTITIS
     Dosage: CLINDAMYCIN 300, 1 DF, 3X/DAY

REACTIONS (2)
  - Paralysis [Unknown]
  - Diplegia [Unknown]

NARRATIVE: CASE EVENT DATE: 20150112
